FAERS Safety Report 9357538 (Version 2)
Quarter: 2013Q2

REPORT INFORMATION
  Report Type: Report from Study
  Country: FR (occurrence: FR)
  Receive Date: 20130620
  Receipt Date: 20130628
  Transmission Date: 20140414
  Serious: Yes (Hospitalization)
  Sender: FDA-Public Use
  Company Number: FR-ROCHE-1239357

PATIENT
  Age: 47 Year
  Sex: Female
  Weight: 100 kg

DRUGS (6)
  1. RITUXIMAB [Suspect]
     Indication: DIFFUSE LARGE B-CELL LYMPHOMA
     Dosage: ON 06/JUN/2013, SHE HAD DOSE OF RITUXIMAB PRIOR TO SERIOUS ADVERSE EVENT. ON 24/JUN/2013, RITUXIMAB
     Route: 065
     Dates: start: 20130523
  2. DOXORUBICIN [Suspect]
     Indication: LYMPHOMA
     Route: 065
     Dates: start: 20130523
  3. CYCLOPHOSPHAMIDE [Suspect]
     Indication: LYMPHOMA
     Route: 065
     Dates: start: 20130523
  4. VINDESINE [Suspect]
     Indication: LYMPHOMA
     Route: 065
     Dates: start: 20130523
  5. BLEOMYCIN [Suspect]
     Indication: LYMPHOMA
     Route: 065
     Dates: start: 20130523
  6. PREDNISONE [Suspect]
     Indication: LYMPHOMA
     Route: 065
     Dates: start: 20130523

REACTIONS (2)
  - Mucosal inflammation [Recovered/Resolved]
  - Dysphagia [Recovered/Resolved]
